FAERS Safety Report 20675307 (Version 2)
Quarter: 2022Q2

REPORT INFORMATION
  Report Type: Spontaneous
  Country: US (occurrence: US)
  Receive Date: 20220405
  Receipt Date: 20220509
  Transmission Date: 20220720
  Serious: Yes (Death, Other)
  Sender: FDA-Public Use
  Company Number: US-PFIZER INC-202200521372

PATIENT
  Age: 89 Year
  Sex: Male
  Weight: 79 kg

DRUGS (1)
  1. VYNDAMAX [Suspect]
     Active Substance: TAFAMIDIS
     Dosage: UNK

REACTIONS (3)
  - Cardiac failure congestive [Fatal]
  - Diabetes mellitus [Fatal]
  - Hypertension [Fatal]
